FAERS Safety Report 15539183 (Version 2)
Quarter: 2019Q2

REPORT INFORMATION
  Report Type: Report from Study
  Country: US (occurrence: US)
  Receive Date: 20181022
  Receipt Date: 20190430
  Transmission Date: 20190711
  Serious: Yes (Hospitalization)
  Sender: FDA-Public Use
  Company Number: US-ACTELION-A-US2016-129595

PATIENT
  Age: 83 Year
  Sex: Female
  Weight: 53.52 kg

DRUGS (2)
  1. OPSUMIT [Suspect]
     Active Substance: MACITENTAN
     Indication: PULMONARY ARTERIAL HYPERTENSION
     Dosage: 10 MG, QD
     Route: 048
     Dates: start: 20151012
  2. PROCARDIA [Concomitant]
     Active Substance: NIFEDIPINE

REACTIONS (16)
  - Poor peripheral circulation [Unknown]
  - Skin warm [Unknown]
  - Fall [Unknown]
  - Pain in extremity [Unknown]
  - Nasopharyngitis [Unknown]
  - Erythema [Unknown]
  - Subdural haematoma [Unknown]
  - Arterial occlusive disease [Unknown]
  - Arthropod bite [Unknown]
  - Gastrointestinal haemorrhage [Unknown]
  - Toe amputation [Unknown]
  - Peripheral swelling [Unknown]
  - Staphylococcal infection [Unknown]
  - Gait disturbance [Unknown]
  - Malaise [Unknown]
  - Cellulitis [Unknown]

NARRATIVE: CASE EVENT DATE: 201601
